FAERS Safety Report 14906529 (Version 1)
Quarter: 2018Q2

REPORT INFORMATION
  Report Type: Spontaneous
  Country: US (occurrence: US)
  Receive Date: 20180517
  Receipt Date: 20180517
  Transmission Date: 20180711
  Serious: Yes (Other)
  Sender: FDA-Public Use
  Company Number: US-CIPLA LTD.-2018US17913

PATIENT

DRUGS (22)
  1. IRON [Concomitant]
     Active Substance: IRON
     Indication: GASTRECTOMY
     Dosage: UNK, QD
     Route: 065
     Dates: start: 2011
  2. VITAMIN B12                        /00324901/ [Concomitant]
     Indication: GASTRECTOMY
     Dosage: 1000 ?G, QD
     Route: 065
     Dates: start: 2011
  3. WOMEN^S MULTIVITE [Concomitant]
     Indication: GASTRECTOMY
     Dosage: UNK
     Route: 065
  4. VITAMIN C [Concomitant]
     Active Substance: ASCORBIC ACID
     Indication: GASTRECTOMY
     Dosage: 500 MG, UNK
     Route: 065
  5. SIMVASTATIN. [Concomitant]
     Active Substance: SIMVASTATIN
     Indication: HYPERCHOLESTEROLAEMIA
     Dosage: 40 MG, QD
     Route: 065
  6. PROBIOTIC                          /06395501/ [Concomitant]
     Active Substance: BIFIDOBACTERIUM ANIMALIS LACTIS
     Indication: GASTROINTESTINAL DISORDER
     Dosage: UNK, QD
     Route: 065
  7. FLONASE                            /00908302/ [Concomitant]
     Active Substance: MOMETASONE FUROATE
     Indication: HYPERSENSITIVITY
     Dosage: 1 SPRAY IN EACH NOSTRIL, ONCE AT NIGHT
     Route: 065
  8. VITAMIN B6 [Concomitant]
     Active Substance: PYRIDOXINE HYDROCHLORIDE
     Indication: GASTRECTOMY
     Dosage: 50 MG, QD
     Route: 065
     Dates: start: 2011
  9. CALCIUM + D3                       /00944201/ [Concomitant]
     Active Substance: CALCIUM CARBONATE\CHOLECALCIFEROL
     Indication: GASTRECTOMY
     Dosage: 600 MG-1000 IU, QD
     Route: 065
     Dates: start: 2011
  10. COENZYME Q10 [Concomitant]
     Active Substance: UBIDECARENONE
     Indication: CARDIAC DISORDER
     Dosage: UNK
     Route: 065
     Dates: end: 201802
  11. GABAPENTIN. [Suspect]
     Active Substance: GABAPENTIN
     Indication: PAIN
     Dosage: 100 MG, TID
     Route: 048
     Dates: start: 201612, end: 201701
  12. METOPROLOL. [Concomitant]
     Active Substance: METOPROLOL
     Indication: HYPERTENSION
     Dosage: 25 MG, QD
     Route: 065
  13. RAMIPRIL. [Concomitant]
     Active Substance: RAMIPRIL
     Indication: CARDIAC DISORDER
     Dosage: 25 MG, QD
     Route: 065
  14. GLUCOSAMINE [Concomitant]
     Active Substance: GLUCOSAMINE
     Indication: ARTHRALGIA
     Dosage: 1200 MG, QD
     Route: 065
  15. TUMS FRESHERS ANTACID [Concomitant]
     Indication: ABDOMINAL DISCOMFORT
     Dosage: UNK, AS NEEDED
     Route: 065
  16. PIOGLITAZONE AND METFORMIN [Concomitant]
     Active Substance: METFORMIN HYDROCHLORIDE\PIOGLITAZONE HYDROCHLORIDE
     Indication: DIABETES MELLITUS
     Dosage: 15MG-850MG, QD
     Route: 065
  17. PANTOPRAZOLE [Concomitant]
     Active Substance: PANTOPRAZOLE
     Indication: GASTRIC DISORDER
     Dosage: 20 MG, QD
     Route: 065
  18. GINKGO BILOBA [Concomitant]
     Active Substance: GINKGO
     Indication: MEMORY IMPAIRMENT
     Dosage: 120 MG, QD
     Route: 065
     Dates: end: 201802
  19. ELIQUIS [Concomitant]
     Active Substance: APIXABAN
     Indication: ATRIAL FIBRILLATION
     Dosage: 5 MG, BID
     Route: 065
     Dates: start: 2018
  20. METFORMIN [Concomitant]
     Active Substance: METFORMIN HYDROCHLORIDE
     Indication: DIABETES MELLITUS
     Dosage: 850 MG, QD
     Route: 065
  21. FUROSEMIDE. [Concomitant]
     Active Substance: FUROSEMIDE
     Indication: PERIPHERAL SWELLING
     Dosage: 40 MG, QD
     Route: 065
  22. PRADAXA [Concomitant]
     Active Substance: DABIGATRAN ETEXILATE MESYLATE
     Indication: ATRIAL FIBRILLATION
     Dosage: 150 MG, UNK
     Route: 065
     Dates: end: 2018

REACTIONS (5)
  - Fatigue [Not Recovered/Not Resolved]
  - Limb deformity [Unknown]
  - Nightmare [Not Recovered/Not Resolved]
  - Arthritis [Unknown]
  - Therapy change [Unknown]

NARRATIVE: CASE EVENT DATE: 201701
